FAERS Safety Report 16164614 (Version 1)
Quarter: 2019Q2

REPORT INFORMATION
  Report Type: Spontaneous
  Country: CN (occurrence: CN)
  Receive Date: 20190405
  Receipt Date: 20190405
  Transmission Date: 20190711
  Serious: Yes (Life-Threatening, Other)
  Sender: FDA-Public Use
  Company Number: CN-GLAXOSMITHKLINE-CN2019GSK060969

PATIENT
  Age: 24 Year
  Sex: Female

DRUGS (1)
  1. ZINACEF [Suspect]
     Active Substance: CEFUROXIME SODIUM
     Indication: INFECTION
     Dosage: 1500 MG, BID
     Route: 041
     Dates: start: 20190320, end: 20190320

REACTIONS (8)
  - Chest discomfort [Unknown]
  - Abdominal pain [Unknown]
  - Hypoaesthesia oral [Unknown]
  - Pruritus [Unknown]
  - Hyperhidrosis [Unknown]
  - Peripheral coldness [Unknown]
  - Anaphylactic shock [Recovering/Resolving]
  - Flushing [Unknown]

NARRATIVE: CASE EVENT DATE: 20190320
